FAERS Safety Report 4688743-6 (Version None)
Quarter: 2005Q2

REPORT INFORMATION
  Report Type: 
  Country: None (occurrence: None)
  Receive Date: 20050608
  Receipt Date: 20050323
  Transmission Date: 20051028
  Serious: No
  Sender: FDA-Public Use
  Company Number: 2004-BP-12379BP

PATIENT
  Age: 81 Year
  Sex: Male
  Weight: 69.9 kg

DRUGS (15)
  1. SPIRIVA [Suspect]
     Indication: PULMONARY CONGESTION
     Dosage: 18 MCG (18 MCG, 1 CAPSULE 1 TIME A DAY), IH
     Route: 055
     Dates: start: 20041001
  2. SPIRIVA [Suspect]
     Indication: PULMONARY CONGESTION
     Dosage: 18 MCG (18 MCG, 1 CAPSULE 1 TIME A DAY), IH
     Route: 055
     Dates: start: 20041001
  3. ASPIRIN [Concomitant]
  4. ASTELIN INHALER (AZELASTINE HYDROCHLORIDE) [Concomitant]
  5. IPRATROPIUM BROMBIDE (IPRATROPIUM BROMIDE) [Concomitant]
  6. HYTRIN [Concomitant]
  7. ICAPS (ICAPS) [Concomitant]
  8. FLOTEX [Concomitant]
  9. SINGULAIR (MONTELUKAST) [Concomitant]
  10. ZOCOR [Concomitant]
  11. FUROSEMIDE [Concomitant]
  12. PREVACID [Concomitant]
  13. GUAIFENESIN (GUAIFENESIN) [Concomitant]
  14. ATROVENT [Concomitant]
  15. LASIX [Concomitant]

REACTIONS (1)
  - DYSPNOEA [None]
